FAERS Safety Report 6644265-4 (Version None)
Quarter: 2010Q1

REPORT INFORMATION
  Report Type: 
  Country: None (occurrence: None)
  Receive Date: 20100322
  Receipt Date: 20100311
  Transmission Date: 20100710
  Serious: Yes (Hospitalization)
  Sender: FDA-Public Use
  Company Number: CA-JNJFOC-20091103664

PATIENT
  Sex: Male
  Weight: 96 kg

DRUGS (2)
  1. REMICADE [Suspect]
     Indication: CROHN'S DISEASE
     Route: 042
     Dates: start: 20071101, end: 20091109
  2. REMICADE [Suspect]
     Route: 042
     Dates: start: 20071101, end: 20091109

REACTIONS (2)
  - JOINT INJURY [None]
  - ROAD TRAFFIC ACCIDENT [None]
